FAERS Safety Report 9493192 (Version 1)
Quarter: 2013Q3

REPORT INFORMATION
  Report Type: Spontaneous
  Country: US (occurrence: US)
  Receive Date: 20130902
  Receipt Date: 20130902
  Transmission Date: 20140515
  Serious: Yes (Hospitalization)
  Sender: FDA-Public Use
  Company Number: US-AMGEN-USASP2013061144

PATIENT
  Age: 45 Year
  Sex: Male
  Weight: 96.5 kg

DRUGS (8)
  1. FILGRASTIM [Suspect]
     Indication: ACUTE LYMPHOCYTIC LEUKAEMIA
     Dosage: 480 MUG, ABOUT 24 HOURS AFTER CHEMO
     Route: 058
     Dates: start: 20121123, end: 20121128
  2. PEGFILGRASTIM [Suspect]
     Indication: ACUTE LYMPHOCYTIC LEUKAEMIA
     Dosage: 6 MG, ONCE
     Route: 058
     Dates: start: 20121129, end: 20121129
  3. FLUDARABINE [Suspect]
     Indication: ACUTE LYMPHOCYTIC LEUKAEMIA
     Dosage: 68 MG, DAY 2-6, 4 WEEK CYCLE
     Route: 042
     Dates: start: 20121116
  4. CYTARABINE [Suspect]
     Indication: ACUTE LYMPHOCYTIC LEUKAEMIA
     Dosage: 4.5 G, DAYS 1-6, 4 WEEK CYCLE
     Route: 042
     Dates: start: 20121116
  5. VICODIN [Concomitant]
     Dosage: UNK
     Dates: start: 20121112
  6. IBUPROFEN [Concomitant]
     Dosage: UNK
     Dates: start: 20121112, end: 20121116
  7. LEVAQUIN [Concomitant]
     Dosage: UNK
     Dates: start: 20121116
  8. LEVAQUIN [Concomitant]
     Dosage: UNK
     Dates: start: 20121116

REACTIONS (1)
  - Febrile neutropenia [Recovered/Resolved]
